FAERS Safety Report 9612953 (Version 3)
Quarter: 2013Q4

REPORT INFORMATION
  Report Type: Spontaneous
  Country: IT (occurrence: IT)
  Receive Date: 20131010
  Receipt Date: 20131121
  Transmission Date: 20140711
  Serious: Yes (Life-Threatening, Hospitalization, Other)
  Sender: FDA-Public Use
  Company Number: IT-PFIZER INC-2013289092

PATIENT
  Age: 69 Year
  Sex: Male

DRUGS (4)
  1. PANTOPRAZOLE [Suspect]
     Indication: DUODENAL ULCER
     Dosage: 80 MG, 1X/DAY
     Route: 048
     Dates: start: 20130830
  2. AMOXICILLIN TRIHYDRATE [Concomitant]
     Dosage: UNK
  3. CLARITHROMYCIN [Concomitant]
     Dosage: UNK
  4. ENOXAPARIN [Concomitant]
     Dosage: UNK

REACTIONS (1)
  - Renal failure acute [Recovering/Resolving]
